FAERS Safety Report 21986137 (Version 1)
Quarter: 2023Q1

REPORT INFORMATION
  Report Type: Report from Study
  Country: CA (occurrence: CA)
  Receive Date: 20230213
  Receipt Date: 20230213
  Transmission Date: 20230417
  Serious: Yes (Other)
  Sender: FDA-Public Use
  Company Number: CA-TAKEDA-2022TUS059052

PATIENT
  Age: 55 Year
  Sex: Female

DRUGS (3)
  1. VEDOLIZUMAB [Suspect]
     Active Substance: VEDOLIZUMAB
     Indication: Crohn^s disease
     Dosage: 300 MILLIGRAM
     Route: 042
     Dates: start: 20220712
  2. Cortiment [Concomitant]
     Dosage: UNK
     Dates: start: 20220607
  3. STELARA [Concomitant]
     Active Substance: USTEKINUMAB
     Dosage: UNK
     Dates: start: 20200616

REACTIONS (3)
  - Crohn^s disease [Recovering/Resolving]
  - COVID-19 [Unknown]
  - Abdominal pain [Unknown]
